FAERS Safety Report 4650809-4 (Version None)
Quarter: 2005Q2

REPORT INFORMATION
  Report Type: 
  Country: None (occurrence: None)
  Receive Date: 20050503
  Receipt Date: 20050422
  Transmission Date: 20051028
  Serious: Yes (Hospitalization)
  Sender: FDA-Public Use
  Company Number: 080305-02

PATIENT
  Age: 53 Year
  Sex: Male

DRUGS (4)
  1. QUILONORM RETARD [Suspect]
     Route: 048
     Dates: start: 20020101
  2. CARBAMAZEPINE [Suspect]
     Route: 048
     Dates: start: 20041007, end: 20041021
  3. QUETIAPINE FUMARATE [Suspect]
     Dosage: 50MG PER DAY
     Route: 048
     Dates: start: 20041008
  4. FLUVOXAMINE MALEATE [Suspect]
     Dosage: 200MG PER DAY
     Route: 048
     Dates: start: 20020101

REACTIONS (6)
  - COORDINATION ABNORMAL [None]
  - DIZZINESS [None]
  - DRUG INTERACTION [None]
  - DRUG LEVEL INCREASED [None]
  - GAIT DISTURBANCE [None]
  - POSTURE ABNORMAL [None]
